FAERS Safety Report 22067242 (Version 2)
Quarter: 2023Q2

REPORT INFORMATION
  Report Type: Spontaneous
  Country: BE (occurrence: BE)
  Receive Date: 20230307
  Receipt Date: 20230530
  Transmission Date: 20230722
  Serious: Yes (Other)
  Sender: FDA-Public Use
  Company Number: BE-JNJFOC-20230307397

PATIENT
  Age: 60 Year
  Sex: Female

DRUGS (9)
  1. TREMFYA [Suspect]
     Active Substance: GUSELKUMAB
     Indication: Psoriatic arthropathy
     Route: 065
     Dates: start: 20220810
  2. TREMFYA [Suspect]
     Active Substance: GUSELKUMAB
  3. TREMFYA [Suspect]
     Active Substance: GUSELKUMAB
  4. CRESTOR [Concomitant]
     Active Substance: ROSUVASTATIN CALCIUM
  5. BISOPROLOL [Concomitant]
     Active Substance: BISOPROLOL
  6. ASPIRIN [Concomitant]
     Active Substance: ASPIRIN
  7. PERINDOPRIL [Concomitant]
     Active Substance: PERINDOPRIL
  8. METFORMIN HYDROCHLORIDE [Concomitant]
     Active Substance: METFORMIN HYDROCHLORIDE
  9. REPAGLINIDE [Concomitant]
     Active Substance: REPAGLINIDE

REACTIONS (1)
  - Myocardial infarction [Unknown]

NARRATIVE: CASE EVENT DATE: 20230224
